FAERS Safety Report 16745275 (Version 3)
Quarter: 2019Q4

REPORT INFORMATION
  Report Type: Spontaneous
  Country: US (occurrence: US)
  Receive Date: 20190827
  Receipt Date: 20191112
  Transmission Date: 20200122
  Serious: Yes (Hospitalization)
  Sender: FDA-Public Use
  Company Number: US-PFIZER INC-2019365940

PATIENT
  Age: 90 Year
  Sex: Female
  Weight: 66.21 kg

DRUGS (5)
  1. IBRANCE [Suspect]
     Active Substance: PALBOCICLIB
     Indication: OVARIAN CANCER
     Dosage: 125 MG, UNK
  2. EXEMESTANE. [Concomitant]
     Active Substance: EXEMESTANE
     Indication: NEOPLASM MALIGNANT
     Dosage: UNK
     Dates: start: 20190910
  3. EXEMESTANE. [Concomitant]
     Active Substance: EXEMESTANE
     Dosage: 1 DAY 25 MG
     Dates: start: 20190905
  4. IBRANCE [Suspect]
     Active Substance: PALBOCICLIB
     Indication: NEOPLASM MALIGNANT
     Dosage: 20 MG, 1X/DAY
     Dates: start: 20190910
  5. IBRANCE [Suspect]
     Active Substance: PALBOCICLIB
     Dosage: 1 EACH DAY
     Dates: start: 20190905

REACTIONS (5)
  - Auditory disorder [Not Recovered/Not Resolved]
  - Off label use [Unknown]
  - Abdominal pain upper [Unknown]
  - Asthenia [Unknown]
  - Product use in unapproved indication [Unknown]
